FAERS Safety Report 7544931-2 (Version None)
Quarter: 2011Q2

REPORT INFORMATION
  Report Type: 
  Country: None (occurrence: None)
  Receive Date: 20110614
  Receipt Date: 20110530
  Transmission Date: 20111010
  Serious: Yes (Hospitalization, Other)
  Sender: FDA-Public Use
  Company Number: US-BAYER-2010-009172

PATIENT
  Sex: Female
  Weight: 95.692 kg

DRUGS (2)
  1. DROSPIRENONE AND ETHINYL ESTRADIOL [Suspect]
     Indication: CONTRACEPTION
     Dosage: UNK
     Dates: start: 20080901, end: 20090101
  2. DROSPIRENONE AND ETHINYL ESTRADIOL [Suspect]
     Indication: PREMENSTRUAL SYNDROME

REACTIONS (12)
  - PULMONARY EMBOLISM [None]
  - PAIN [None]
  - MYOCARDIAL INFARCTION [None]
  - CHEST PAIN [None]
  - CEREBROVASCULAR ACCIDENT [None]
  - MENTAL DISORDER [None]
  - INJURY [None]
  - HEART RATE IRREGULAR [None]
  - DEEP VEIN THROMBOSIS [None]
  - DYSPNOEA [None]
  - THROMBOSIS [None]
  - GALLBLADDER DISORDER [None]
